FAERS Safety Report 21417896 (Version 1)
Quarter: 2022Q4

REPORT INFORMATION
  Report Type: Report from Study
  Country: US (occurrence: US)
  Receive Date: 20221006
  Receipt Date: 20221006
  Transmission Date: 20230112
  Serious: Yes (Other)
  Sender: FDA-Public Use
  Company Number: US-MYLANLABS-2022M1110660

PATIENT
  Sex: Male

DRUGS (8)
  1. CYTARABINE [Suspect]
     Active Substance: CYTARABINE
     Indication: T-cell type acute leukaemia
     Dosage: UNK UNK, CYCLE
     Route: 065
  2. CYTARABINE [Suspect]
     Active Substance: CYTARABINE
     Dosage: UNK UNK, CYCLE, IN A COMBINATION WITH VENETOCLAX
     Route: 065
  3. CYCLOPHOSPHAMIDE [Suspect]
     Active Substance: CYCLOPHOSPHAMIDE
     Indication: T-cell type acute leukaemia
     Dosage: UNK UNK, CYCLE
     Route: 065
  4. VENETOCLAX [Concomitant]
     Active Substance: VENETOCLAX
     Indication: T-cell type acute leukaemia
     Dosage: 100 MILLIGRAM, QD
     Route: 065
  5. FLUDARABINE [Concomitant]
     Active Substance: FLUDARABINE PHOSPHATE
     Indication: T-cell type acute leukaemia
     Dosage: UNK, CYCLE, IN A COMBINATION WITH VENETOCLAX
     Route: 065
  6. GEMTUZUMAB OZOGAMICIN [Concomitant]
     Active Substance: GEMTUZUMAB OZOGAMICIN
     Indication: T-cell type acute leukaemia
     Dosage: UNK, CYCLE, IN A COMBINATION WITH VENETOCLAX
     Route: 065
  7. METHOTREXATE [Concomitant]
     Active Substance: METHOTREXATE
     Indication: T-cell type acute leukaemia
     Dosage: UNK, CYCLE, IN A COMBINATION WITH VENETOCLAX
     Route: 065
  8. VORICONAZOLE [Concomitant]
     Active Substance: VORICONAZOLE
     Indication: Product used for unknown indication
     Dosage: UNK
     Route: 065

REACTIONS (1)
  - Drug ineffective [Unknown]
